FAERS Safety Report 4692573-9 (Version None)
Quarter: 2005Q2

REPORT INFORMATION
  Report Type: 
  Country: None (occurrence: None)
  Receive Date: 20050617
  Receipt Date: 20050610
  Transmission Date: 20051028
  Serious: Yes (Life-Threatening, Disabling)
  Sender: FDA-Public Use
  Company Number: US-MERCK-0506USA01769

PATIENT
  Age: 47 Year
  Sex: Female

DRUGS (3)
  1. FOSAMAX [Suspect]
     Indication: OSTEOPOROSIS
     Route: 048
     Dates: start: 19990101
  2. EVISTA [Concomitant]
     Route: 048
  3. VALTREX [Concomitant]
     Route: 065

REACTIONS (3)
  - CHOKING [None]
  - DYSPHAGIA [None]
  - OESOPHAGEAL OEDEMA [None]
